FAERS Safety Report 4391206-9 (Version None)
Quarter: 2004Q2

REPORT INFORMATION
  Report Type: 
  Country: None (occurrence: None)
  Receive Date: 20040621
  Receipt Date: 20040330
  Transmission Date: 20050107
  Serious: Yes (Hospitalization, Other)
  Sender: FDA-Public Use
  Company Number: USA-2002-0000617

PATIENT
  Age: 26 Year
  Sex: Male
  Weight: 84 kg

DRUGS (25)
  1. OXYCONTIN [Suspect]
     Indication: PAIN
     Dosage: 10 MG, Q12H, ORAL
     Route: 048
     Dates: start: 20001117
  2. CANNABIS (CANNABIS) [Suspect]
     Dosage: INHALATION
     Route: 055
  3. ALCOHOL (ETHANOL) [Suspect]
     Dosage: ORAL
     Route: 048
  4. XANAX [Suspect]
  5. PROZAC [Concomitant]
  6. KLONOPIN [Concomitant]
  7. VALIUM [Concomitant]
  8. COLACE [Concomitant]
  9. CELEBREX [Concomitant]
  10. ACETAMINOPHEN [Concomitant]
  11. AMITRIPTYLINE HCL [Concomitant]
  12. VIOXX [Concomitant]
  13. PROPOXYPHENE HCL AND ACETAMINOPHEN [Concomitant]
  14. SOMA [Concomitant]
  15. LORTAB [Concomitant]
  16. TORADOL [Concomitant]
  17. VISTARIL [Concomitant]
  18. NORFLEX [Concomitant]
  19. OXYCODONE HCL [Concomitant]
  20. ROXICODONE [Concomitant]
  21. MEDROL [Concomitant]
  22. LOTEMAX [Concomitant]
  23. ENDOCET [Concomitant]
  24. CYCLOBENZAPRINE [Concomitant]
  25. PERCOCET [Concomitant]

REACTIONS (25)
  - AGITATION [None]
  - CHEST PAIN [None]
  - CHILLS [None]
  - CONSTIPATION [None]
  - DIARRHOEA [None]
  - DRUG ABUSER [None]
  - DRUG DEPENDENCE [None]
  - DRUG INEFFECTIVE [None]
  - DRUG TOLERANCE INCREASED [None]
  - DRUG WITHDRAWAL SYNDROME [None]
  - ERECTILE DYSFUNCTION [None]
  - FAECAL INCONTINENCE [None]
  - HYPERHIDROSIS [None]
  - INSOMNIA [None]
  - MUSCLE SPASMS [None]
  - PAIN [None]
  - PERSONALITY DISORDER [None]
  - POLYSUBSTANCE ABUSE [None]
  - SUICIDE ATTEMPT [None]
  - TREMOR [None]
  - URINARY INCONTINENCE [None]
  - URINARY RETENTION [None]
  - VOMITING [None]
  - WEIGHT INCREASED [None]
  - YAWNING [None]
